FAERS Safety Report 13696724 (Version 1)
Quarter: 2017Q2

REPORT INFORMATION
  Report Type: Spontaneous
  Country: IT (occurrence: IT)
  Receive Date: 20170628
  Receipt Date: 20170628
  Transmission Date: 20170830
  Serious: Yes (Hospitalization)
  Sender: FDA-Public Use
  Company Number: IT-FRESENIUS KABI-FK201705403

PATIENT
  Age: 47 Year
  Sex: Female

DRUGS (1)
  1. DEFEROXAMINE MESYLATE (MANUFACTURER UNKNOWN) [Suspect]
     Active Substance: DEFEROXAMINE MESYLATE
     Indication: THALASSAEMIA
     Route: 050

REACTIONS (5)
  - Liver abscess [Recovered/Resolved]
  - Hypotension [None]
  - Subcutaneous abscess [Recovered/Resolved]
  - Klebsiella infection [Recovered/Resolved]
  - Tachycardia [None]
